FAERS Safety Report 21797987 (Version 9)
Quarter: 2024Q4

REPORT INFORMATION
  Report Type: Report from Study
  Country: US (occurrence: US)
  Receive Date: 20221230
  Receipt Date: 20241209
  Transmission Date: 20250114
  Serious: Yes (Other)
  Sender: TAKEDA
  Company Number: US-TAKEDA-2021TUS068576

PATIENT
  Age: 65 Year
  Sex: Male

DRUGS (4)
  1. LANADELUMAB [Suspect]
     Active Substance: LANADELUMAB
     Indication: Immune system disorder
     Dosage: 300 MILLIGRAM, Q2WEEKS
     Dates: start: 20210916
  2. LANADELUMAB [Suspect]
     Active Substance: LANADELUMAB
     Dosage: 300 MILLIGRAM, Q2WEEKS
     Dates: start: 202109
  3. LANADELUMAB [Suspect]
     Active Substance: LANADELUMAB
  4. ICATIBANT ACETATE [Concomitant]
     Active Substance: ICATIBANT ACETATE
     Dosage: UNK

REACTIONS (12)
  - Chest pain [Unknown]
  - Cardiac disorder [Unknown]
  - Injection site urticaria [Recovered/Resolved]
  - Weight decreased [Unknown]
  - Gastroenteritis viral [Unknown]
  - Hepatic enzyme increased [Unknown]
  - Joint injury [Unknown]
  - Weight increased [Unknown]
  - Product distribution issue [Unknown]
  - Hereditary angioedema [Recovered/Resolved]
  - Injection site pruritus [Recovered/Resolved]
  - Injection site erythema [Recovered/Resolved]

NARRATIVE: CASE EVENT DATE: 20210901
